FAERS Safety Report 7615646-7 (Version None)
Quarter: 2011Q3

REPORT INFORMATION
  Report Type: 
  Country: None (occurrence: None)
  Receive Date: 20110711
  Receipt Date: 20110630
  Transmission Date: 20111222
  Serious: Yes (Hospitalization)
  Sender: FDA-Public Use
  Company Number: 2011SP002201

PATIENT
  Age: 48 Year
  Sex: Male
  Weight: 95.45 kg

DRUGS (6)
  1. GABAPENTIN [Concomitant]
  2. RANITIDINE [Concomitant]
  3. CYCLOBENZAPRINE [Concomitant]
  4. METFORMIN HCL [Concomitant]
  5. ROSUVASTATIN [Concomitant]
  6. LURASIDONE HYDROCHLORIDE [Suspect]
     Indication: SCHIZOPHRENIA
     Dosage: 40 MG; ; ORAL
     Route: 048
     Dates: start: 20110405

REACTIONS (3)
  - CHEST PAIN [None]
  - DYSPNOEA [None]
  - BLOOD GLUCOSE INCREASED [None]
